FAERS Safety Report 9548362 (Version 1)
Quarter: 2013Q3

REPORT INFORMATION
  Report Type: Spontaneous
  Country: US (occurrence: None)
  Receive Date: 20130705
  Receipt Date: 20130705
  Transmission Date: 20140515
  Serious: Yes (Hospitalization, Other)
  Sender: FDA-Public Use
  Company Number: RB-51096-2013

PATIENT
  Sex: 0

DRUGS (1)
  1. SUBOXONE 8 MG [Suspect]
     Indication: ACCIDENTAL EXPOSURE TO PRODUCT BY CHILD
     Dosage: SUBOXONE FILM; DOSING DETAILS UNKNOWN UNKNOWN

REACTIONS (1)
  - Accidental exposure to product [None]
